FAERS Safety Report 5092461-2 (Version None)
Quarter: 2006Q3

REPORT INFORMATION
  Report Type: 
  Country: None (occurrence: None)
  Receive Date: 20060830
  Receipt Date: 20060823
  Transmission Date: 20061208
  Serious: Yes (Hospitalization)
  Sender: FDA-Public Use
  Company Number: FR-JNJFOC-20060800105

PATIENT
  Age: 76 Year
  Sex: Female

DRUGS (4)
  1. REMICADE [Suspect]
     Indication: ENTEROCOLITIS HAEMORRHAGIC
     Dosage: 3RD INFUSION
     Route: 042
  2. LEVOTHYROXINE SODIUM [Concomitant]
     Route: 065
  3. IMUREL [Concomitant]
     Route: 048
  4. IMUREL [Concomitant]
     Route: 048

REACTIONS (2)
  - ERYTHEMA [None]
  - ERYTHEMA NODOSUM [None]
